FAERS Safety Report 5106259-X (Version None)
Quarter: 2006Q3

REPORT INFORMATION
  Report Type: 
  Country: None (occurrence: None)
  Receive Date: 20060918
  Receipt Date: 20060913
  Transmission Date: 20061208
  Serious: Yes (Death, Life-Threatening)
  Sender: FDA-Public Use
  Company Number: 2006UW17954

PATIENT
  Age: 43 Year
  Sex: Female

DRUGS (6)
  1. SEROQUEL [Suspect]
     Route: 048
  2. SEROQUEL [Suspect]
     Route: 048
  3. DEPAKOTE ER [Concomitant]
  4. LITHOBID [Concomitant]
     Dosage: 300 MG QAM, 600 MG QHS
  5. LORAZEPAM [Concomitant]
  6. LEVOXYL [Concomitant]

REACTIONS (1)
  - CEREBRAL INFARCTION [None]
